FAERS Safety Report 8696662 (Version 8)
Quarter: 2013Q3

REPORT INFORMATION
  Report Type: Report from Study
  Country: US (occurrence: US)
  Receive Date: 20120801
  Receipt Date: 20130715
  Transmission Date: 20140515
  Serious: Yes (Hospitalization, Other)
  Sender: FDA-Public Use
  Company Number: US-ACTELION-A-US2012-68870

PATIENT
  Age: 66 Year
  Sex: Male

DRUGS (5)
  1. TRACLEER [Suspect]
     Indication: PULMONARY ARTERIAL HYPERTENSION
     Dosage: UNK
     Route: 048
  2. TRACLEER [Suspect]
     Dosage: UNK
     Route: 048
  3. VENTAVIS [Suspect]
     Indication: PULMONARY ARTERIAL HYPERTENSION
     Dosage: UNK
     Route: 055
  4. SILDENAFIL [Concomitant]
  5. COUMADIN [Concomitant]

REACTIONS (13)
  - Renal disorder [Unknown]
  - Fall [Unknown]
  - Pulmonary embolism [Unknown]
  - Spinal fracture [Unknown]
  - Upper limb fracture [Unknown]
  - Oxygen saturation abnormal [Unknown]
  - Liver disorder [Unknown]
  - Transfusion [Unknown]
  - Skeletal injury [Unknown]
  - Cyst [Unknown]
  - Amputation [Unknown]
  - Walking aid user [Unknown]
  - Musculoskeletal discomfort [Unknown]
